FAERS Safety Report 13077435 (Version 1)
Quarter: 2016Q4

REPORT INFORMATION
  Report Type: Report from Study
  Country: FR (occurrence: FR)
  Receive Date: 20161231
  Receipt Date: 20161231
  Transmission Date: 20170207
  Serious: Yes (Hospitalization, Other)
  Sender: FDA-Public Use
  Company Number: FR-BAXTER-2016BAX064610

PATIENT
  Age: 48 Year
  Sex: Female

DRUGS (15)
  1. ENDOXAN 50 MG, COMPRIM? ENROB? [Suspect]
     Active Substance: CYCLOPHOSPHAMIDE
     Indication: PLASMA CELL MYELOMA
     Dosage: FIRST COURSE OF CHEMOTHERAPHY, FREQUENCY ALSO REPORTED AS ON EVERY MONDAY
     Route: 048
     Dates: start: 20160222, end: 20160307
  2. IMNOVID [Suspect]
     Active Substance: POMALIDOMIDE
     Indication: PLASMA CELL MYELOMA
     Dosage: FIRST COURSE OF CHEMOTHERAPHY, DOSE ALSO REPORTED AS 4 MG FROM DAY 1 TO DAY 21
     Route: 048
     Dates: start: 20160222, end: 20160307
  3. IMNOVID [Suspect]
     Active Substance: POMALIDOMIDE
     Dosage: SECOND COURSE OF CHEMO THERAPY
     Route: 048
     Dates: start: 20160323, end: 20160401
  4. BACTRIM [Suspect]
     Active Substance: SULFAMETHOXAZOLE\TRIMETHOPRIM
     Indication: PROPHYLAXIS
     Route: 065
     Dates: start: 20160222, end: 20160315
  5. NEODEX [Suspect]
     Active Substance: DEXAMETHASONE\NEOMYCIN
     Dosage: THIRD COURSE OF CHEMOTHERAPY
     Route: 065
  6. LOVENOX [Concomitant]
     Active Substance: ENOXAPARIN SODIUM
     Indication: PRODUCT USED FOR UNKNOWN INDICATION
     Route: 065
  7. CLAMOXYL [Suspect]
     Active Substance: AMOXICILLIN\CLAVULANIC ACID
     Dosage: ONE TABLET AT 09:00 AM
     Route: 065
     Dates: start: 20160314, end: 20160314
  8. ZELITREX [Suspect]
     Active Substance: VALACYCLOVIR HYDROCHLORIDE
     Indication: PROPHYLAXIS
     Route: 065
     Dates: start: 20160222, end: 20160315
  9. ZELITREX [Suspect]
     Active Substance: VALACYCLOVIR HYDROCHLORIDE
     Route: 065
  10. NEODEX [Suspect]
     Active Substance: DEXAMETHASONE\NEOMYCIN
     Dosage: SECOND COURSE OF CHEMOTHERAPY
     Route: 065
     Dates: start: 20160323
  11. CLAMOXYL [Suspect]
     Active Substance: AMOXICILLIN\CLAVULANIC ACID
     Indication: PROPHYLAXIS
     Route: 065
     Dates: start: 20160222, end: 20160305
  12. ZELITREX [Suspect]
     Active Substance: VALACYCLOVIR HYDROCHLORIDE
     Route: 065
     Dates: start: 20160323
  13. TRAMADOL. [Concomitant]
     Active Substance: TRAMADOL
     Indication: PRODUCT USED FOR UNKNOWN INDICATION
     Route: 065
  14. ENDOXAN 50 MG, COMPRIM? ENROB? [Suspect]
     Active Substance: CYCLOPHOSPHAMIDE
     Dosage: SECOND COURSE OF CHEMOTHERAPY
     Route: 048
     Dates: start: 20160323
  15. NEODEX [Suspect]
     Active Substance: DEXAMETHASONE\NEOMYCIN
     Indication: PLASMA CELL MYELOMA
     Dosage: FIRST COURSE OF CHEMOTHERAPY
     Route: 065
     Dates: start: 20160222

REACTIONS (3)
  - Pyrexia [Recovered/Resolved]
  - Drug reaction with eosinophilia and systemic symptoms [Recovering/Resolving]
  - Rash maculo-papular [Recovered/Resolved]

NARRATIVE: CASE EVENT DATE: 20160303
